FAERS Safety Report 6866571-0 (Version None)
Quarter: 2010Q2

REPORT INFORMATION
  Report Type: 
  Country: None (occurrence: None)
  Receive Date: 20100603
  Receipt Date: 20100315
  Transmission Date: 20101027
  Serious: Yes (Other)
  Sender: FDA-Public Use
  Company Number: AMI0019235

PATIENT
  Age: 28 Year
  Sex: Female

DRUGS (2)
  1. CUPRIMINE [Suspect]
     Indication: CYSTINURIA
     Dosage: 1000MG BID 047
     Dates: start: 19690101, end: 20070101
  2. SODIUM BICARBONATE [Suspect]
     Dosage: BID

REACTIONS (4)
  - DRUG INEFFECTIVE [None]
  - NAUSEA [None]
  - NEPHROLITHIASIS [None]
  - VOMITING [None]
